FAERS Safety Report 11810785 (Version 1)
Quarter: 2015Q4

REPORT INFORMATION
  Report Type: Spontaneous
  Country: US (occurrence: US)
  Receive Date: 20151208
  Receipt Date: 20151208
  Transmission Date: 20160305
  Serious: No
  Sender: FDA-Public Use
  Company Number: US-GLAXOSMITHKLINE-US2015172628

PATIENT
  Age: 68 Year

DRUGS (3)
  1. ANORO ELLIPTA [Suspect]
     Active Substance: UMECLIDINIUM BROMIDE\VILANTEROL TRIFENATATE
     Indication: CHRONIC OBSTRUCTIVE PULMONARY DISEASE
     Dosage: 1 PUFF(S), 1D
     Route: 055
     Dates: start: 201509
  2. LISINOPRIL. [Concomitant]
     Active Substance: LISINOPRIL
  3. GLYBURIDE. [Concomitant]
     Active Substance: GLYBURIDE

REACTIONS (5)
  - Tooth disorder [Recovering/Resolving]
  - Bone pain [Not Recovered/Not Resolved]
  - Tooth repair [Unknown]
  - Arthralgia [Not Recovered/Not Resolved]
  - Dysgeusia [Not Recovered/Not Resolved]
